FAERS Safety Report 24529913 (Version 1)
Quarter: 2024Q4

REPORT INFORMATION
  Report Type: Spontaneous
  Country: US (occurrence: None)
  Receive Date: 20241018
  Receipt Date: 20241018
  Transmission Date: 20250114
  Serious: Yes (Death)
  Sender: Public
  Company Number: None

PATIENT
  Age: 68 Year
  Sex: Male
  Weight: 66.15 kg

DRUGS (17)
  1. OPDIVO [Suspect]
     Active Substance: NIVOLUMAB
     Indication: Non-small cell lung cancer
     Dosage: OTHER FREQUENCY : EVERY 21 DAYS;?
     Route: 042
     Dates: start: 20240925
  2. PACLITAXEL [Suspect]
     Active Substance: PACLITAXEL
     Indication: Non-small cell lung cancer
     Dosage: OTHER FREQUENCY : EVERY 21 DAYS;?
     Route: 042
     Dates: start: 20240925
  3. Paclitaxel 366mg [Concomitant]
     Dates: start: 20240925
  4. palonosetron 0.25mg [Concomitant]
     Dates: start: 20240925
  5. dexamethasone 10mg [Concomitant]
     Dates: start: 20240925
  6. DIPHENHYDRAMINE [Concomitant]
     Active Substance: DIPHENHYDRAMINE
     Dates: start: 20240925
  7. FAMOTIDINE [Concomitant]
     Active Substance: FAMOTIDINE
     Dates: start: 20240925
  8. XGEVA [Concomitant]
     Active Substance: DENOSUMAB
     Dates: start: 20241002
  9. CALCIUM CARBONATE 500MG [Concomitant]
     Active Substance: CALCIUM CARBONATE
  10. cholecalciferol 25mcg [Concomitant]
  11. ALBUTEROL SULFATE [Concomitant]
     Active Substance: ALBUTEROL SULFATE
  12. OLANZAPINE [Concomitant]
     Active Substance: OLANZAPINE
  13. ATORVASTATIN [Concomitant]
     Active Substance: ATORVASTATIN
  14. FERROUS SULFATE [Concomitant]
     Active Substance: FERROUS SULFATE
  15. FUROSEMIDE [Concomitant]
     Active Substance: FUROSEMIDE
  16. POTASSIUM CHLORIDE [Concomitant]
     Active Substance: POTASSIUM CHLORIDE
  17. sotalol 120mg [Concomitant]

REACTIONS (3)
  - Respiratory arrest [None]
  - Pulse absent [None]
  - Infusion related reaction [None]

NARRATIVE: CASE EVENT DATE: 20241016
